FAERS Safety Report 4604428-6 (Version None)
Quarter: 2005Q1

REPORT INFORMATION
  Report Type: 
  Country: None (occurrence: None)
  Receive Date: 20050215
  Receipt Date: 20041118
  Transmission Date: 20050727
  Serious: Yes (Hospitalization)
  Sender: FDA-Public Use
  Company Number: 359695

PATIENT
  Age: 39 Year
  Sex: Female

DRUGS (3)
  1. PEGASYS [Suspect]
     Dosage: SUBCUTANEOUS
     Route: 058
     Dates: start: 20031212
  2. COPEGUS [Suspect]
     Dosage: ORAL
     Route: 048
     Dates: start: 20031212
  3. CELEBREX [Suspect]

REACTIONS (6)
  - CHEST PAIN [None]
  - DISEASE RECURRENCE [None]
  - DYSPNOEA [None]
  - MYOCARDIAL INFARCTION [None]
  - NASOPHARYNGITIS [None]
  - VOMITING [None]
